FAERS Safety Report 4631375-6 (Version None)
Quarter: 2005Q2

REPORT INFORMATION
  Report Type: 
  Country: None (occurrence: None)
  Receive Date: 20050407
  Receipt Date: 20050401
  Transmission Date: 20051028
  Serious: Yes (Other)
  Sender: FDA-Public Use
  Company Number: 2005-BP-05433RO

PATIENT
  Age: 2 Month
  Sex: Female
  Weight: 5.6 kg

DRUGS (2)
  1. METOCLOPRAMIDE [Suspect]
     Indication: GASTROOESOPHAGEAL REFLUX DISEASE
     Dosage: 37.5 MG Q6H (DOSING ERROR) (SEE TEXT), PO; SEE IMAGE
     Route: 048
  2. RANITIDINE [Concomitant]

REACTIONS (9)
  - BACK PAIN [None]
  - CHILLS [None]
  - FEEDING DISORDER [None]
  - GRIMACING [None]
  - HYPERHIDROSIS [None]
  - INSOMNIA [None]
  - IRRITABILITY [None]
  - REPETITIVE SPEECH [None]
  - TARDIVE DYSKINESIA [None]
